FAERS Safety Report 6406159-9 (Version None)
Quarter: 2009Q4

REPORT INFORMATION
  Report Type: 
  Country: None (occurrence: None)
  Receive Date: 20091019
  Receipt Date: 20081120
  Transmission Date: 20100525
  Serious: Yes (Death)
  Sender: FDA-Public Use
  Company Number: US-AVENTIS-200817239US

PATIENT
  Sex: Female
  Weight: 146.4 kg

DRUGS (2)
  1. ANZEMET [Suspect]
     Dosage: DOSE: 100 MG PRIOR TO DOXIL/ MONTH
     Route: 042
     Dates: start: 20080623, end: 20080826
  2. UNKNOWN DRUG [Concomitant]
     Dosage: DOSE: UNK

REACTIONS (1)
  - ONCOLOGIC COMPLICATION [None]
